FAERS Safety Report 26021535 (Version 3)
Quarter: 2025Q4

REPORT INFORMATION
  Report Type: Report from Study
  Country: US (occurrence: US)
  Receive Date: 20251110
  Receipt Date: 20251212
  Transmission Date: 20260117
  Serious: Yes (Other)
  Sender: MALLINCKRODT
  Company Number: US-MALLINCKRODT-MNK202506987

PATIENT
  Age: 67 Year
  Sex: Male
  Weight: 210 kg

DRUGS (1)
  1. CORTICOTROPIN [Suspect]
     Active Substance: CORTICOTROPIN
     Indication: Ankylosing spondylitis
     Dosage: 80 UNITS
     Route: 058
     Dates: start: 202412

REACTIONS (3)
  - Thrombosis [Unknown]
  - Contusion [Not Recovered/Not Resolved]
  - Injection site discolouration [Unknown]
